FAERS Safety Report 21269383 (Version 1)
Quarter: 2022Q3

REPORT INFORMATION
  Report Type: Spontaneous
  Country: US (occurrence: None)
  Receive Date: 20220829
  Receipt Date: 20220829
  Transmission Date: 20221027
  Serious: Yes (Other)
  Sender: FDA-Public Use
  Company Number: None

PATIENT
  Age: 54 Year
  Sex: Female
  Weight: 72.12 kg

DRUGS (1)
  1. BEBTELOVIMAB [Suspect]
     Active Substance: BEBTELOVIMAB
     Indication: COVID-19
     Dates: start: 20220829, end: 20220829

REACTIONS (6)
  - Feeling abnormal [None]
  - Throat irritation [None]
  - Visual impairment [None]
  - Blood pressure decreased [None]
  - Pallor [None]
  - Infusion related reaction [None]

NARRATIVE: CASE EVENT DATE: 20220829
